FAERS Safety Report 21955239 (Version 1)
Quarter: 2023Q1

REPORT INFORMATION
  Report Type: Other
  Country: FR (occurrence: FR)
  Receive Date: 20230206
  Receipt Date: 20230206
  Transmission Date: 20230418
  Serious: Yes (Death)
  Sender: FDA-Public Use
  Company Number: None

PATIENT

DRUGS (4)
  1. FLUCONAZOLE [Interacting]
     Active Substance: FLUCONAZOLE
     Indication: Abdominal infection
     Dosage: 800 MILLIGRAM, QD
     Route: 048
     Dates: start: 202212
  2. VENLAFAXINE [Interacting]
     Active Substance: VENLAFAXINE HYDROCHLORIDE
     Indication: Abdominal infection
     Dosage: 1 DOSAGE FORM, QD
     Route: 048
  3. CIPROFLOXACIN [Interacting]
     Active Substance: CIPROFLOXACIN
     Indication: Abdominal infection
     Dosage: UNK
     Route: 048
     Dates: start: 202212
  4. FLAGYL [Interacting]
     Active Substance: METRONIDAZOLE\METRONIDAZOLE HYDROCHLORIDE
     Indication: Abdominal infection
     Dosage: 1500 MILLIGRAM, QD
     Route: 048
     Dates: start: 202212

REACTIONS (2)
  - Cardiac arrest [Fatal]
  - Ventricular arrhythmia [Fatal]

NARRATIVE: CASE EVENT DATE: 20221218
